FAERS Safety Report 5076837-5 (Version None)
Quarter: 2006Q3

REPORT INFORMATION
  Report Type: 
  Country: None (occurrence: None)
  Receive Date: 20060801
  Receipt Date: 20060713
  Transmission Date: 20061208
  Serious: Yes (Other)
  Sender: FDA-Public Use
  Company Number: 2006BH011814

PATIENT
  Age: 51 Year
  Sex: Male
  Weight: 52 kg

DRUGS (2)
  1. ADVATE (OCTOCOG ALFA) [Suspect]
     Indication: FACTOR VIII DEFICIENCY
     Dosage: 3000 IU;ONCE;IV
     Route: 042
     Dates: start: 20060502, end: 20060502
  2. FACTOR VIII, RECOMBINANT [Concomitant]

REACTIONS (1)
  - ANTI FACTOR VIII ANTIBODY POSITIVE [None]
